FAERS Safety Report 14794316 (Version 3)
Quarter: 2018Q2

REPORT INFORMATION
  Report Type: Spontaneous
  Country: DE (occurrence: DE)
  Receive Date: 20180423
  Receipt Date: 20180529
  Transmission Date: 20180711
  Serious: Yes (Hospitalization, Other)
  Sender: FDA-Public Use
  Company Number: DE-TEVA-2018-DE-884236

PATIENT
  Age: 48 Year
  Sex: Male

DRUGS (3)
  1. BENDAMUSTINE HYDROCHLORIDE. [Suspect]
     Active Substance: BENDAMUSTINE HYDROCHLORIDE
     Indication: PRODUCT USED FOR UNKNOWN INDICATION
     Dosage: 90 MG/M2, INJECTION SOLUTION/INFUSION SOLUTION, CYCLIC
     Route: 042
  2. APIXABAN [Concomitant]
     Active Substance: APIXABAN
     Indication: PRODUCT USED FOR UNKNOWN INDICATION
     Dosage: 5 MG, TWICE DAILY (1-0-1-0)
     Route: 048
  3. RITUXIMAB. [Suspect]
     Active Substance: RITUXIMAB
     Indication: PRODUCT USED FOR UNKNOWN INDICATION
     Dosage: 375 MG/M2, INJECTION SOLUTION/INFUSION SOLUTION
     Route: 042

REACTIONS (9)
  - Pyrexia [Unknown]
  - B-cell lymphoma [Unknown]
  - Cough [Unknown]
  - Febrile neutropenia [Unknown]
  - Myalgia [Unknown]
  - Rhinitis [Unknown]
  - Headache [Unknown]
  - Prescribed underdose [Unknown]
  - Upper respiratory tract irritation [Unknown]
